FAERS Safety Report 6864123-X (Version None)
Quarter: 2010Q3

REPORT INFORMATION
  Report Type: 
  Country: None (occurrence: None)
  Receive Date: 20100720
  Receipt Date: 20100707
  Transmission Date: 20110219
  Serious: Yes (Hospitalization)
  Sender: FDA-Public Use
  Company Number: CIP10001598

PATIENT
  Age: 88 Year
  Sex: Male

DRUGS (11)
  1. ACTONEL [Suspect]
     Dosage: 35 MG ONCE WEEKLY, ORAL
     Route: 048
  2. OMEPRAZOLE [Concomitant]
  3. ASPIRIN [Concomitant]
  4. VITAMIN D [Concomitant]
  5. CALCIUM (CALCIUM) [Concomitant]
  6. KLOR-CON [Concomitant]
  7. DIGOXIN [Concomitant]
  8. FUROSEMIDE [Concomitant]
  9. FLEXERIL [Concomitant]
  10. FLOMAX (MORNIFLUMATE) [Concomitant]
  11. METOPROLOL SUCCINATE [Concomitant]

REACTIONS (3)
  - FALL [None]
  - PNEUMONIA [None]
  - SPINAL FRACTURE [None]
